FAERS Safety Report 7201761-9 (Version None)
Quarter: 2010Q4

REPORT INFORMATION
  Report Type: 
  Country: None (occurrence: None)
  Receive Date: 20101229
  Receipt Date: 20101220
  Transmission Date: 20110411
  Serious: Yes (Other)
  Sender: FDA-Public Use
  Company Number: JP-ROCHE-750367

PATIENT
  Age: 83 Year
  Sex: Male

DRUGS (4)
  1. AVASTIN [Suspect]
     Indication: LARGE INTESTINE CARCINOMA
     Dosage: DOSAGE IS UNCERTAIN.
     Route: 041
     Dates: start: 20100301, end: 20101201
  2. XELODA [Suspect]
     Indication: LARGE INTESTINE CARCINOMA
     Dosage: REPORTED AS XELODA: 300. DOSAGE IS UNCERTAIN.
     Route: 048
  3. IRINOTECAN HYDROCHLORIDE [Concomitant]
     Dosage: DOSAGE IS UNCERTAIN.
     Route: 041
  4. TS-1 [Concomitant]
     Dosage: DOSAGE IS UNCERTAIN.
     Route: 048

REACTIONS (1)
  - METASTASES TO PERITONEUM [None]
